FAERS Safety Report 12841500 (Version 2)
Quarter: 2017Q3

REPORT INFORMATION
  Report Type: Spontaneous
  Country: JP (occurrence: JP)
  Receive Date: 20161012
  Receipt Date: 20170928
  Transmission Date: 20171127
  Serious: Yes (Hospitalization)
  Sender: FDA-Public Use
  Company Number: JP-OTSUKA-JP-2012-10515

PATIENT
  Age: 70 Year
  Sex: Male

DRUGS (3)
  1. PLETAAL OD TABLETS 50MG [Suspect]
     Active Substance: CILOSTAZOL
     Indication: VASCULAR STENT RESTENOSIS
     Dosage: UNK
     Route: 048
     Dates: start: 201005, end: 201006
  2. WARFARIN [Suspect]
     Active Substance: WARFARIN
     Indication: PRODUCT USED FOR UNKNOWN INDICATION
     Dosage: UNK
     Route: 048
     Dates: end: 201006
  3. PLAVIX [Suspect]
     Active Substance: CLOPIDOGREL BISULFATE
     Indication: PRODUCT USED FOR UNKNOWN INDICATION
     Dosage: UNK
     Route: 048
     Dates: end: 201006

REACTIONS (3)
  - Intestinal haematoma [Unknown]
  - Haematochezia [Unknown]
  - Gastrointestinal erosion [Unknown]

NARRATIVE: CASE EVENT DATE: 201006
